FAERS Safety Report 13542718 (Version 1)
Quarter: 2017Q2

REPORT INFORMATION
  Report Type: Spontaneous
  Country: US (occurrence: US)
  Receive Date: 20170512
  Receipt Date: 20170512
  Transmission Date: 20170830
  Serious: No
  Sender: FDA-Public Use
  Company Number: US-ROCHE-662828

PATIENT
  Age: 89 Year
  Sex: Male
  Weight: 56.7 kg

DRUGS (3)
  1. ZOCOR [Concomitant]
     Active Substance: SIMVASTATIN
     Indication: PRODUCT USED FOR UNKNOWN INDICATION
     Dosage: ONE AT BEDTIME ( DISCONTINUED USE IN AUGUST 2009)
     Route: 065
  2. BEVACIZUMAB [Suspect]
     Active Substance: BEVACIZUMAB
     Indication: NEOVASCULAR AGE-RELATED MACULAR DEGENERATION
     Dosage: UNK, OTHER FORM OF BEVACIZUMAB REPORTED AS ^INJECTION^ AND ITS FREQUENCY WAS 4 HOURS.
     Route: 031
     Dates: start: 20090327, end: 20090626
  3. NORVASC [Concomitant]
     Active Substance: AMLODIPINE BESYLATE
     Indication: PRODUCT USED FOR UNKNOWN INDICATION
     Dosage: ONE IN MORNING (DISCONTINUED USE IN AUGUST 2009)
     Route: 065

REACTIONS (8)
  - Blister [Unknown]
  - Constipation [Unknown]
  - Drug ineffective [Unknown]
  - Dry mouth [Unknown]
  - Skin exfoliation [Not Recovered/Not Resolved]
  - Asthenia [Unknown]
  - Pruritus [Not Recovered/Not Resolved]
  - Eye disorder [Unknown]

NARRATIVE: CASE EVENT DATE: 200904
